FAERS Safety Report 24816710 (Version 1)
Quarter: 2025Q1

REPORT INFORMATION
  Report Type: Report from Study
  Country: US (occurrence: US)
  Receive Date: 20250107
  Receipt Date: 20250107
  Transmission Date: 20250409
  Serious: Yes (Other)
  Sender: BIOGEN
  Company Number: US-BIOGEN-2024BI01295516

PATIENT
  Sex: Female

DRUGS (3)
  1. PLEGRIDY [Suspect]
     Active Substance: PEGINTERFERON BETA-1A
     Indication: Multiple sclerosis
     Route: 050
     Dates: start: 20190413, end: 20190521
  2. PLEGRIDY [Suspect]
     Active Substance: PEGINTERFERON BETA-1A
  3. TECFIDERA [Suspect]
     Active Substance: DIMETHYL FUMARATE
     Indication: Multiple sclerosis
     Route: 050
     Dates: start: 20191014

REACTIONS (7)
  - Systemic lupus erythematosus [Unknown]
  - Ovarian cancer [Unknown]
  - Keloid scar [Unknown]
  - Drug ineffective [Unknown]
  - Attention deficit hyperactivity disorder [Unknown]
  - Multiple sclerosis [Unknown]
  - Alopecia [Unknown]
